FAERS Safety Report 5193837-5 (Version None)
Quarter: 2006Q4

REPORT INFORMATION
  Report Type: 
  Country: None (occurrence: None)
  Receive Date: 20061222
  Receipt Date: 20061212
  Transmission Date: 20070319
  Serious: Yes (Hospitalization, Other)
  Sender: FDA-Public Use
  Company Number: 237714K06USA

PATIENT
  Age: 50 Year
  Sex: Female
  Weight: 58.0604 kg

DRUGS (6)
  1. REBIF [Suspect]
     Indication: MULTIPLE SCLEROSIS
     Dosage: 44 MCG, 1 IN 1 DAYS, ORAL
     Route: 048
     Dates: start: 20060515, end: 20061110
  2. COUMADIN [Suspect]
     Dosage: 5 MG, 1 IN 1 DAYS, ORAL
     Route: 048
  3. BISOPROLOL (BISOPROLOL /00802601/) [Concomitant]
  4. BACLOFEN [Concomitant]
  5. DIAZEPAM [Concomitant]
  6. DOXEPIN HCL [Concomitant]

REACTIONS (5)
  - ABDOMINAL PAIN [None]
  - NAUSEA [None]
  - PANCYTOPENIA [None]
  - PNEUMONIA [None]
  - VOMITING [None]
